FAERS Safety Report 4982433-8 (Version None)
Quarter: 2006Q2

REPORT INFORMATION
  Report Type: 
  Country: None (occurrence: None)
  Receive Date: 20060419
  Receipt Date: 20060406
  Transmission Date: 20061013
  Serious: Yes (Other)
  Sender: FDA-Public Use
  Company Number: A100480

PATIENT
  Age: 54 Year
  Sex: Male
  Weight: 68.0396 kg

DRUGS (1)
  1. VIAGRA [Suspect]
     Indication: ERECTILE DYSFUNCTION
     Dosage: 50 MG (AS NECESSARY), ORAL
     Route: 048
     Dates: start: 19980101

REACTIONS (9)
  - DRUG EFFECT DECREASED [None]
  - DRUG INEFFECTIVE [None]
  - ERECTION INCREASED [None]
  - ERYTHEMA [None]
  - GENITAL RASH [None]
  - PEYRONIE'S DISEASE [None]
  - PREMATURE EJACULATION [None]
  - PSORIASIS [None]
  - RASH [None]
